FAERS Safety Report 7676409-X (Version None)
Quarter: 2011Q3

REPORT INFORMATION
  Report Type: 
  Country: None (occurrence: None)
  Receive Date: 20110811
  Receipt Date: 20110809
  Transmission Date: 20111222
  Serious: Yes (Hospitalization)
  Sender: FDA-Public Use
  Company Number: US-PFIZER INC-2011143040

PATIENT
  Sex: Female

DRUGS (1)
  1. NITROSTAT [Suspect]
     Indication: CHEST PAIN
     Dosage: 0.4 MG, 1X/DAY
     Route: 048
     Dates: start: 20080101

REACTIONS (2)
  - PRODUCT SOLUBILITY ABNORMAL [None]
  - CHEST PAIN [None]
